APPROVED DRUG PRODUCT: AMPICILLIN SODIUM
Active Ingredient: AMPICILLIN SODIUM
Strength: EQ 10GM BASE/VIAL
Dosage Form/Route: INJECTABLE;INJECTION
Application: A201404 | Product #001 | TE Code: AP
Applicant: ISTITUTO BIOCHIMICO ITALIANO SPA
Approved: Dec 20, 2013 | RLD: No | RS: No | Type: RX